FAERS Safety Report 4517920-X (Version None)
Quarter: 2004Q4

REPORT INFORMATION
  Report Type: 
  Country: None (occurrence: None)
  Receive Date: 20041130
  Receipt Date: 20041116
  Transmission Date: 20050328
  Serious: Yes (Death)
  Sender: FDA-Public Use
  Company Number: 210457

PATIENT
  Age: 77 Year
  Sex: Male

DRUGS (1)
  1. RITUXAN [Suspect]
     Indication: DIFFUSE LARGE B-CELL LYMPHOMA
     Dosage: 300 MG INTRAVENOUS
     Route: 042
     Dates: start: 20040708, end: 20040908

REACTIONS (2)
  - RESPIRATORY FAILURE [None]
  - WHEEZING [None]
